FAERS Safety Report 8021887-X (Version None)
Quarter: 2012Q1

REPORT INFORMATION
  Report Type: 
  Country: None (occurrence: None)
  Receive Date: 20120104
  Receipt Date: 20111227
  Transmission Date: 20120608
  Serious: Yes (Hospitalization, Other)
  Sender: FDA-Public Use
  Company Number: US-VIROPHARMA INCORPORATED-20110912CINRY2281

PATIENT
  Sex: Female

DRUGS (17)
  1. CINRYZE [Suspect]
     Indication: HEREDITARY ANGIOEDEMA
     Dates: start: 20100101, end: 20101101
  2. BERINERT [Concomitant]
     Indication: HEREDITARY ANGIOEDEMA
     Dosage: UNKNOWN
  3. BUDESONIDE-FORMOTEROL [Concomitant]
     Indication: PRODUCT USED FOR UNKNOWN INDICATION
     Dosage: UNKNOWN
  4. PROTONIX [Concomitant]
     Indication: PRODUCT USED FOR UNKNOWN INDICATION
     Dosage: UNKNOWN
     Route: 065
  5. PANTOPRAZOLE [Concomitant]
     Indication: PRODUCT USED FOR UNKNOWN INDICATION
     Dosage: UNKNOWN
  6. PROAIR HFA [Concomitant]
     Indication: ASTHMA
     Dosage: UNKNOWN
  7. SERTRALINE HYDROCHLORIDE [Concomitant]
     Indication: PRODUCT USED FOR UNKNOWN INDICATION
     Route: 065
  8. SINGULAIR [Concomitant]
     Indication: ASTHMA
     Route: 065
     Dates: start: 20100101
  9. CINRYZE [Suspect]
     Dates: start: 20110101
  10. VICODIN [Suspect]
     Indication: PAIN
     Route: 048
     Dates: start: 20100101, end: 20100101
  11. MS CONTIN [Concomitant]
     Indication: PAIN
     Route: 048
     Dates: start: 20110812
  12. NON ESTROGEN BIRTH CONTROL PILL [Concomitant]
     Indication: CONTRACEPTION
     Dosage: UNKNOWN
     Route: 048
  13. NORETHINDRONE [Concomitant]
     Indication: PRODUCT USED FOR UNKNOWN INDICATION
     Dosage: UNKNOWN
  14. DILAUDID [Concomitant]
     Indication: PAIN
     Dosage: UNKNOWN
     Route: 065
  15. CORTISONE ACETATE [Concomitant]
     Indication: ADRENAL INSUFFICIENCY
     Dosage: UNKNOWN
     Route: 065
     Dates: start: 20110101
  16. CINRYZE [Suspect]
     Dates: start: 20100101, end: 20101101
  17. SYMBICORT [Concomitant]
     Indication: ASTHMA

REACTIONS (24)
  - KLEBSIELLA BACTERAEMIA [None]
  - DRUG WITHDRAWAL SYNDROME [None]
  - PITUITARY TUMOUR [None]
  - HEADACHE [None]
  - CANDIDA SEPSIS [None]
  - BLOOD GLUCOSE FLUCTUATION [None]
  - CATHETER SITE HAEMORRHAGE [None]
  - INFUSION RELATED REACTION [None]
  - DEVICE RELATED INFECTION [None]
  - DRUG DEPENDENCE [None]
  - CATHETER SITE PAIN [None]
  - STAPHYLOCOCCAL INFECTION [None]
  - BACTERAEMIA [None]
  - INCORRECT DRUG ADMINISTRATION RATE [None]
  - DIZZINESS [None]
  - UPPER LIMB FRACTURE [None]
  - DRUG INEFFECTIVE [None]
  - PYELONEPHRITIS [None]
  - CANDIDIASIS [None]
  - ENTEROCOCCAL INFECTION [None]
  - BACTERIAL INFECTION [None]
  - OFF LABEL USE [None]
  - HEREDITARY ANGIOEDEMA [None]
  - PSEUDOMONAL SEPSIS [None]
